FAERS Safety Report 19415390 (Version 2)
Quarter: 2021Q2

REPORT INFORMATION
  Report Type: Spontaneous
  Country: DE (occurrence: DE)
  Receive Date: 20210615
  Receipt Date: 20210623
  Transmission Date: 20210717
  Serious: Yes (Hospitalization, Other)
  Sender: FDA-Public Use
  Company Number: NVSC2021DE126755

PATIENT
  Sex: Male

DRUGS (2)
  1. METHOTREXATE. [Suspect]
     Active Substance: METHOTREXATE
     Dosage: 10 MG
     Route: 065
  2. METHOTREXATE. [Suspect]
     Active Substance: METHOTREXATE
     Indication: RHEUMATIC DISORDER
     Dosage: 7.5 MG
     Route: 065

REACTIONS (4)
  - Hepatic enzyme increased [Recovering/Resolving]
  - Ill-defined disorder [Unknown]
  - Product use in unapproved indication [Unknown]
  - Rheumatic disorder [Recovering/Resolving]
